FAERS Safety Report 8216548-8 (Version None)
Quarter: 2012Q1

REPORT INFORMATION
  Report Type: 
  Country: None (occurrence: None)
  Receive Date: 20120316
  Receipt Date: 20120315
  Transmission Date: 20120608
  Serious: Yes (Death, Hospitalization)
  Sender: FDA-Public Use
  Company Number: US-B.I. PHARMACEUTICALS,INC./RIDGEFIELD-2012-BP-01522BP

PATIENT
  Age: 84 Year
  Sex: Male

DRUGS (1)
  1. PRADAXA [Suspect]
     Route: 048

REACTIONS (4)
  - SUBDURAL HAEMORRHAGE [None]
  - NAUSEA [None]
  - HEADACHE [None]
  - CEREBRAL HAEMORRHAGE [None]
